FAERS Safety Report 23609519 (Version 2)
Quarter: 2024Q1

REPORT INFORMATION
  Report Type: Report from Study
  Country: BR (occurrence: BR)
  Receive Date: 20240308
  Receipt Date: 20240314
  Transmission Date: 20240410
  Serious: Yes (Other)
  Sender: FDA-Public Use
  Company Number: BR-002147023-NVSC2023BR263364

PATIENT
  Sex: Female

DRUGS (6)
  1. KISQALI [Suspect]
     Active Substance: RIBOCICLIB
     Indication: Breast cancer
     Dosage: 3 TABLETS
     Route: 065
  2. KISQALI [Suspect]
     Active Substance: RIBOCICLIB
     Dosage: UNK
     Route: 065
  3. AMLODIPINE [Suspect]
     Active Substance: AMLODIPINE BESYLATE
     Indication: Hypertension
     Dosage: 1 DOSAGE FORM, BID (1 TABLET AT NIGHT AND ANOTHER IN THE MORNING)
     Route: 048
     Dates: start: 2022
  4. ZOMETA [Suspect]
     Active Substance: ZOLEDRONIC ACID
     Indication: Metastases to bone
     Dosage: UNK (A MONTHLY APPLICATION)
     Route: 042
     Dates: start: 202201, end: 202312
  5. ANASTROZOLE [Concomitant]
     Active Substance: ANASTROZOLE
     Indication: Aromatase inhibition therapy
     Dosage: 1 DOSAGE FORM, QD
     Route: 048
     Dates: start: 202310
  6. ENALAPRIL [Concomitant]
     Active Substance: ENALAPRIL
     Indication: Hypertension
     Dosage: 2 DOSAGE FORM, BID (2 TABLETS AT MORNING AND 2 AT NIGHT)
     Route: 048
     Dates: start: 2022

REACTIONS (5)
  - Metastases to liver [Unknown]
  - Neutrophil count decreased [Recovered/Resolved]
  - Neutrophil count increased [Not Recovered/Not Resolved]
  - Hepatic mass [Unknown]
  - Neutrophil count decreased [Unknown]

NARRATIVE: CASE EVENT DATE: 20230101
